FAERS Safety Report 7260720-0 (Version None)
Quarter: 2011Q1

REPORT INFORMATION
  Report Type: 
  Country: None (occurrence: None)
  Receive Date: 20110130
  Receipt Date: 20101228
  Transmission Date: 20110831
  Serious: Yes (Hospitalization)
  Sender: FDA-Public Use
  Company Number: US-ABBOTT-10P-163-0693031-00

PATIENT
  Sex: Female

DRUGS (3)
  1. SYNTHROID [Concomitant]
     Indication: HYPOTHYROIDISM
  2. HUMIRA [Suspect]
     Indication: CROHN'S DISEASE
     Dosage: LOADING DOSE 160MG
     Route: 058
     Dates: start: 20101203, end: 20101213
  3. OTHER UNKNOWN MEDICATION [Concomitant]
     Indication: PRODUCT USED FOR UNKNOWN INDICATION

REACTIONS (13)
  - COUGH [None]
  - PAIN IN EXTREMITY [None]
  - RESPIRATORY TRACT CONGESTION [None]
  - NAUSEA [None]
  - VOMITING [None]
  - NASOPHARYNGITIS [None]
  - ABDOMINAL PAIN [None]
  - INJECTION SITE PAIN [None]
  - PYREXIA [None]
  - NIGHT SWEATS [None]
  - ARTHRALGIA [None]
  - HYPERSENSITIVITY [None]
  - CROHN'S DISEASE [None]
